FAERS Safety Report 12979753 (Version 1)
Quarter: 2016Q4

REPORT INFORMATION
  Report Type: Spontaneous
  Country: CA (occurrence: CA)
  Receive Date: 20161128
  Receipt Date: 20161128
  Transmission Date: 20170207
  Serious: Yes (Other)
  Sender: FDA-Public Use
  Company Number: CA-BIOGEN-2016BI00321837

PATIENT
  Age: 45 Year
  Sex: Female
  Weight: 59.02 kg

DRUGS (1)
  1. TYSABRI [Suspect]
     Active Substance: NATALIZUMAB
     Indication: MULTIPLE SCLEROSIS
     Route: 042

REACTIONS (11)
  - Tremor [Recovered/Resolved]
  - Headache [Recovered/Resolved]
  - Hernia [Recovered/Resolved]
  - Vaginal lesion [Recovered/Resolved]
  - Dysmenorrhoea [Recovered/Resolved]
  - Sleep disorder due to general medical condition, insomnia type [Recovered/Resolved]
  - Carpal tunnel syndrome [Recovered/Resolved]
  - Osteitis [Recovered/Resolved]
  - Sciatica [Recovered/Resolved]
  - Chills [Recovered/Resolved]
  - Hypotension [Recovered/Resolved]
